FAERS Safety Report 9111026 (Version 2)
Quarter: 2014Q1

REPORT INFORMATION
  Report Type: Spontaneous
  Country: US (occurrence: US)
  Receive Date: 20130219
  Receipt Date: 20140213
  Transmission Date: 20141002
  Serious: No
  Sender: FDA-Public Use
  Company Number: US-BRISTOL-MYERS SQUIBB COMPANY-17080383

PATIENT
  Age: 81 Year
  Sex: Female

DRUGS (1)
  1. ORENCIA [Suspect]
     Indication: RHEUMATOID ARTHRITIS
     Dosage: LAST INFUSION WAS ON 25OCT2012 AND 17DEC12.NO OF INFUSION-2.
     Route: 042

REACTIONS (4)
  - Sneezing [Not Recovered/Not Resolved]
  - Intranasal paraesthesia [Unknown]
  - Hypertension [Unknown]
  - Drug ineffective [Unknown]
